FAERS Safety Report 6165092-0 (Version None)
Quarter: 2009Q2

REPORT INFORMATION
  Report Type: 
  Country: None (occurrence: None)
  Receive Date: 20090423
  Receipt Date: 20090413
  Transmission Date: 20091009
  Serious: Yes (Disabling, Other)
  Sender: FDA-Public Use
  Company Number: US-ELI_LILLY_AND_COMPANY-US200901003538

PATIENT
  Age: 52 Year
  Sex: Female
  Weight: 101.59 kg

DRUGS (6)
  1. CYMBALTA [Suspect]
     Indication: FIBROMYALGIA
     Dosage: 60 MG, DAILY (1/D)
     Dates: start: 20080204
  2. CYMBALTA [Suspect]
     Dosage: 30 MG, DAILY (1/D)
     Dates: start: 20080401
  3. LYRICA [Concomitant]
  4. VITAMIN D [Concomitant]
     Indication: HYPOVITAMINOSIS
     Dosage: 50000 UNK, UNK
     Dates: start: 20080101
  5. FLEXERIL [Concomitant]
     Indication: FIBROMYALGIA
     Dosage: 10 MG, EACH EVENING
  6. ACYCLOVIR [Concomitant]
     Indication: GENITAL HERPES
     Dosage: 400 UNK, 2/D
     Dates: start: 20080601

REACTIONS (3)
  - HYPOACUSIS [None]
  - VISION BLURRED [None]
  - VISUAL ACUITY REDUCED [None]
